FAERS Safety Report 16079120 (Version 1)
Quarter: 2019Q1

REPORT INFORMATION
  Report Type: Spontaneous
  Country: US (occurrence: US)
  Receive Date: 20190315
  Receipt Date: 20190315
  Transmission Date: 20190418
  Serious: No
  Sender: FDA-Public Use
  Company Number: US-PERRIGO-18US002289

PATIENT
  Age: 28 Year
  Sex: Female
  Weight: 63.49 kg

DRUGS (1)
  1. TESTOSTERONE CYPIONATE. [Suspect]
     Active Substance: TESTOSTERONE CYPIONATE
     Indication: GENDER DYSPHORIA
     Dosage: 100 MG, EVERY 2 WEEKS
     Route: 030
     Dates: start: 20171103

REACTIONS (1)
  - Off label use [Not Recovered/Not Resolved]

NARRATIVE: CASE EVENT DATE: 20171103
